FAERS Safety Report 7759828-2 (Version None)
Quarter: 2011Q3

REPORT INFORMATION
  Report Type: 
  Country: None (occurrence: None)
  Receive Date: 20110919
  Receipt Date: 20110908
  Transmission Date: 20111222
  Serious: Yes (Hospitalization)
  Sender: FDA-Public Use
  Company Number: US-UCBSA-040985

PATIENT
  Sex: Female

DRUGS (1)
  1. CIMZIA [Suspect]
     Indication: CROHN'S DISEASE
     Route: 058
     Dates: start: 20100501

REACTIONS (6)
  - DIARRHOEA [None]
  - UTERINE NEOPLASM [None]
  - ABDOMINAL PAIN [None]
  - ABDOMINAL DISTENSION [None]
  - OVARIAN CYST [None]
  - CONSTIPATION [None]
